FAERS Safety Report 18021063 (Version 1)
Quarter: 2020Q3

REPORT INFORMATION
  Report Type: Report from Study
  Country: None (occurrence: BR)
  Receive Date: 20200714
  Receipt Date: 20200714
  Transmission Date: 20201103
  Serious: Yes (Other)
  Sender: FDA-Public Use
  Company Number: BR-ABBVIE-20K-020-3473559-00

PATIENT
  Age: 8 Year
  Sex: Female
  Weight: 40 kg

DRUGS (2)
  1. METHOTREXATE. [Concomitant]
     Active Substance: METHOTREXATE
     Indication: DRUG RESISTANCE
  2. HUMIRA [Suspect]
     Active Substance: ADALIMUMAB
     Indication: JUVENILE IDIOPATHIC ARTHRITIS
     Route: 058
     Dates: start: 20200605

REACTIONS (10)
  - Wrong technique in product usage process [Unknown]
  - Abdominal pain [Recovering/Resolving]
  - Injection site swelling [Unknown]
  - Arthralgia [Recovering/Resolving]
  - Injection site bruising [Not Recovered/Not Resolved]
  - Injection site vesicles [Recovered/Resolved]
  - Incorrect route of product administration [Unknown]
  - Skin discolouration [Unknown]
  - Pain [Unknown]
  - Gait inability [Unknown]

NARRATIVE: CASE EVENT DATE: 2020
